FAERS Safety Report 9588539 (Version 1)
Quarter: 2013Q4

REPORT INFORMATION
  Report Type: Spontaneous
  Country: US (occurrence: US)
  Receive Date: 20131003
  Receipt Date: 20131003
  Transmission Date: 20140711
  Serious: Yes (Other)
  Sender: FDA-Public Use
  Company Number: US-AMGEN-USASP2012064451

PATIENT
  Age: 40 Year
  Sex: Male
  Weight: 86.17 kg

DRUGS (3)
  1. ENBREL [Suspect]
     Indication: PSORIATIC ARTHROPATHY
     Dosage: 50 MG, QWK
     Route: 058
     Dates: start: 201203
  2. FENTANYL [Concomitant]
     Dosage: 50 MCG/HR
  3. CELEXA                             /00582602/ [Concomitant]
     Dosage: 20 MG, UNK

REACTIONS (1)
  - Hepatitis C [Unknown]
